FAERS Safety Report 17371124 (Version 1)
Quarter: 2020Q1

REPORT INFORMATION
  Report Type: Other
  Country: FR (occurrence: FR)
  Receive Date: 20200205
  Receipt Date: 20200205
  Transmission Date: 20200409
  Serious: Yes (Congenital Anomaly, Other)
  Sender: FDA-Public Use
  Company Number: FR-MACLEODS PHARMACEUTICALS US LTD-MAC2020024999

PATIENT

DRUGS (8)
  1. LAMIVUDINE. [Suspect]
     Active Substance: LAMIVUDINE
     Indication: PRODUCT USED FOR UNKNOWN INDICATION
     Dosage: UNK, 1 COURSE OF LAMIVUDINE (EPIVIR, ZEFFIX, 3TC) DURING FIRST TRIMESTER OF PREGNANCY
     Route: 064
     Dates: start: 20070512
  2. VIRACEPT [Suspect]
     Active Substance: NELFINAVIR MESYLATE
     Indication: PRODUCT USED FOR UNKNOWN INDICATION
     Dosage: 1 COURSE OF NELFINAVIR (VIRACEPT, NFV) 250 MG PER DAY DURING FIRST TRIMESTER OF PREGNANCY
     Route: 064
     Dates: start: 20070512, end: 20070612
  3. RETROVIR [Suspect]
     Active Substance: ZIDOVUDINE
     Indication: PRODUCT USED FOR UNKNOWN INDICATION
     Dosage: 1 COURSE OF ZIDOVUDINE (RETROVIR, ZDV) DURING FIRST TRIMESTER OF PREGNANCY
     Route: 064
     Dates: start: 20070521
  4. NORVIR [Suspect]
     Active Substance: RITONAVIR
     Indication: PRODUCT USED FOR UNKNOWN INDICATION
     Dosage: UNK, 1 COURSE OF RITONAVIR (NORVIR, RTV) DURING FIRST TRIMESTER OF PREGNANCY
     Route: 064
     Dates: start: 20070510
  5. LOPINAVIR [Suspect]
     Active Substance: LOPINAVIR
     Indication: HIV INFECTION
     Dosage: DURING FIRST TRIMESTER
     Route: 064
     Dates: start: 20070510
  6. TENOFOVIR [Suspect]
     Active Substance: TENOFOVIR
     Indication: PRODUCT USED FOR UNKNOWN INDICATION
     Dosage: UNK, 1 COURSE OF TENOFOVIR TAB/CAPS DURING FIRST TRIMESTER OF PREGNANCY
     Route: 064
     Dates: start: 20070403, end: 20070521
  7. EMTRICITABINE [Suspect]
     Active Substance: EMTRICITABINE
     Indication: PRODUCT USED FOR UNKNOWN INDICATION
     Dosage: UNK, 1 COURSE OF EMTRICITABINE TAB/CAPS DURING FIRST TRIMESTER DURING PREGNANCY
     Route: 064
     Dates: start: 20070403, end: 20070521
  8. STOCRIN, EFV [Suspect]
     Active Substance: EFAVIRENZ
     Indication: PRODUCT USED FOR UNKNOWN INDICATION
     Dosage: UNK, 1 COURSE OF EFAVIRENZ (STOCRIN, EFV) DURING FIRST TRIMESTER DURING PREGNANCY
     Route: 064
     Dates: start: 20070403, end: 20070510

REACTIONS (2)
  - Foetal exposure during pregnancy [Unknown]
  - Hydrocele [Unknown]
